FAERS Safety Report 6885801-2 (Version None)
Quarter: 2010Q3

REPORT INFORMATION
  Report Type: 
  Country: None (occurrence: None)
  Receive Date: 20100729
  Receipt Date: 20080911
  Transmission Date: 20110219
  Serious: Yes (Hospitalization)
  Sender: FDA-Public Use
  Company Number: US-PFIZER INC-2008058568

PATIENT
  Sex: Female

DRUGS (2)
  1. QUINAPRIL HCL [Suspect]
     Dosage: QD
     Route: 048
  2. QUINAPRIL HCL [Suspect]
     Dosage: QD
     Route: 048

REACTIONS (2)
  - BLOOD PRESSURE INADEQUATELY CONTROLLED [None]
  - DIZZINESS [None]
